FAERS Safety Report 14342388 (Version 1)
Quarter: 2018Q1

REPORT INFORMATION
  Report Type: Spontaneous
  Country: FR (occurrence: FR)
  Receive Date: 20180102
  Receipt Date: 20180102
  Transmission Date: 20180509
  Serious: Yes (Death)
  Sender: FDA-Public Use
  Company Number: FR-MYLANLABS-2017M1083642

PATIENT
  Age: 49 Year
  Sex: Male
  Weight: 52 kg

DRUGS (1)
  1. PACLITAXEL. [Suspect]
     Active Substance: PACLITAXEL
     Indication: NEOPLASM MALIGNANT
     Route: 042

REACTIONS (1)
  - Pruritus [Fatal]

NARRATIVE: CASE EVENT DATE: 20171208
